FAERS Safety Report 5297266-5 (Version None)
Quarter: 2007Q2

REPORT INFORMATION
  Report Type: 
  Country: None (occurrence: None)
  Receive Date: 20070416
  Receipt Date: 20070404
  Transmission Date: 20071010
  Serious: Yes (Life-Threatening, Hospitalization)
  Sender: FDA-Public Use
  Company Number: US-JNJFOC-20070202152

PATIENT
  Sex: Female
  Weight: 57.3 kg

DRUGS (4)
  1. YONDELIS [Suspect]
     Dosage: CYCLE 2
     Route: 042
  2. YONDELIS [Suspect]
     Indication: OVARIAN CANCER
     Route: 042
  3. DOXIL [Suspect]
     Dosage: CYCLE 2
     Route: 042
  4. DOXIL [Suspect]
     Indication: OVARIAN CANCER
     Route: 042

REACTIONS (2)
  - ELECTROCARDIOGRAM CHANGE [None]
  - PALPITATIONS [None]
